FAERS Safety Report 5858342-9 (Version None)
Quarter: 2008Q3

REPORT INFORMATION
  Report Type: 
  Country: None (occurrence: None)
  Receive Date: 20080826
  Receipt Date: 20080818
  Transmission Date: 20090109
  Serious: Yes (Hospitalization, Other)
  Sender: FDA-Public Use
  Company Number: PHBS2008FR05428

PATIENT
  Age: 31 Year
  Sex: Male

DRUGS (4)
  1. CLOZAPINE [Suspect]
     Indication: SCHIZOPHRENIA
     Dosage: 600 MG / DAY
     Route: 065
  2. CLOZAPINE [Interacting]
     Dosage: 700 MG / DAY
     Route: 065
  3. CLOZAPINE [Interacting]
     Dosage: 350 MG / DAY
     Route: 065
  4. FLUVOXAMINE MALEATE [Interacting]
     Indication: ANTIDEPRESSANT DRUG LEVEL DECREASED
     Dosage: 50 MG / DAY
     Route: 065

REACTIONS (8)
  - ALCOHOL USE [None]
  - ANTIPSYCHOTIC DRUG LEVEL BELOW THERAPEUTIC [None]
  - COGNITIVE DISORDER [None]
  - DELUSION [None]
  - DRUG INEFFECTIVE [None]
  - DRUG INTERACTION [None]
  - HALLUCINATION [None]
  - PSYCHOTIC DISORDER [None]
